FAERS Safety Report 14423869 (Version 1)
Quarter: 2018Q1

REPORT INFORMATION
  Report Type: Spontaneous
  Country: FR (occurrence: FR)
  Receive Date: 20180123
  Receipt Date: 20180123
  Transmission Date: 20180509
  Serious: Yes (Hospitalization)
  Sender: FDA-Public Use
  Company Number: FR-AUROBINDO-AUR-APL-2018-002240

PATIENT
  Age: 52 Year
  Sex: Male
  Weight: 115 kg

DRUGS (5)
  1. PIPERACILLINE [Suspect]
     Active Substance: PIPERACILLIN SODIUM
     Indication: SEPTIC SHOCK
     Dosage: 12 G, ONCE A DAY
     Route: 042
     Dates: start: 20170131, end: 20170208
  2. GENTAMICINE PANPHARMA [Suspect]
     Active Substance: GENTAMICIN
     Indication: SEPTIC SHOCK
     Dosage: 450 MG, UNK
     Route: 042
     Dates: start: 20170131, end: 20170131
  3. INEXIUM                            /01479302/ [Suspect]
     Active Substance: ESOMEPRAZOLE MAGNESIUM
     Indication: PROPHYLAXIS AGAINST GASTROINTESTINAL ULCER
     Dosage: 20 MG, ONCE A DAY
     Route: 048
     Dates: start: 20170131
  4. ROVAMYCINE                         /00074401/ [Suspect]
     Active Substance: SPIRAMYCIN
     Indication: SEPTIC SHOCK
     Dosage: ()
     Route: 042
     Dates: start: 20170131
  5. PARACETAMOL [Suspect]
     Active Substance: ACETAMINOPHEN
     Indication: PRODUCT USED FOR UNKNOWN INDICATION
     Dosage: ()
     Route: 042
     Dates: start: 20170131

REACTIONS (1)
  - Acute generalised exanthematous pustulosis [Recovered/Resolved]

NARRATIVE: CASE EVENT DATE: 20170201
